FAERS Safety Report 9834115 (Version 5)
Quarter: 2014Q2

REPORT INFORMATION
  Report Type: Report from Study
  Country: FR (occurrence: FR)
  Receive Date: 20140122
  Receipt Date: 20140610
  Transmission Date: 20141212
  Serious: Yes (Other)
  Sender: FDA-Public Use
  Company Number: FR-UCBSA-108839

PATIENT
  Age: 63 Year
  Sex: Female
  Weight: 53 kg

DRUGS (8)
  1. CERTOLIZUMAB PEGOL RA [Suspect]
     Indication: RHEUMATOID ARTHRITIS
     Dosage: 200 MG, EV 2 WEEKS(QOW)
     Route: 058
     Dates: start: 201205, end: 20131104
  2. CERTOLIZUMAB PEGOL RA [Suspect]
     Dosage: 400 MG, EV 2 WEEKS(QOW)
     Route: 058
     Dates: start: 20120604
  3. CORTANCYL [Suspect]
     Indication: RHEUMATOID ARTHRITIS
     Dosage: 10 MG DAILY
  4. CORTANCYL [Suspect]
     Dosage: 8 MG, ONCE DAILY (QD)
     Route: 048
     Dates: start: 20110328
  5. CORTANCYL [Suspect]
     Dosage: 7.5 MG DAILY
     Dates: start: 2006
  6. INEXIUM [Concomitant]
     Indication: GASTROOESOPHAGEAL REFLUX DISEASE
     Dosage: 20 MG
     Dates: start: 2010
  7. INEXIUM [Concomitant]
     Dosage: 40 MG DAILY
  8. DAFALGAN [Concomitant]
     Indication: PAIN
     Dosage: 1 TO 4 TABLETS DAILY

REACTIONS (2)
  - Oral candidiasis [Not Recovered/Not Resolved]
  - Oesophageal candidiasis [Not Recovered/Not Resolved]
